FAERS Safety Report 14368006 (Version 2)
Quarter: 2018Q1

REPORT INFORMATION
  Report Type: Spontaneous
  Country: US (occurrence: US)
  Receive Date: 20180109
  Receipt Date: 20180223
  Transmission Date: 20180509
  Serious: Yes (Hospitalization)
  Sender: FDA-Public Use
  Company Number: US-009507513-1801USA000402

PATIENT
  Age: 47 Year
  Sex: Female

DRUGS (1)
  1. INTRON A [Suspect]
     Active Substance: INTERFERON ALFA-2B
     Indication: LEUKAEMIA
     Dosage: 4 DF (REPORTED AS 4 MMU) TIW, STRENGTH REPORTED AS:18 MMU
     Route: 058
     Dates: start: 20171010, end: 20171129

REACTIONS (1)
  - Drug ineffective [Unknown]

NARRATIVE: CASE EVENT DATE: 20171129
